FAERS Safety Report 4330822-7 (Version None)
Quarter: 2004Q1

REPORT INFORMATION
  Report Type: 
  Country: None (occurrence: None)
  Receive Date: 20040331
  Receipt Date: 20040311
  Transmission Date: 20041129
  Serious: Yes (Hospitalization)
  Sender: FDA-Public Use
  Company Number: USA031151946

PATIENT
  Age: 73 Year
  Sex: Female
  Weight: 58 kg

DRUGS (15)
  1. FORTEO [Suspect]
     Indication: OSTEOPOROSIS
     Dates: start: 20030704
  2. LIPITOR [Concomitant]
  3. PRILOSEC [Concomitant]
  4. DURAGESIC [Concomitant]
  5. CELEBREX [Concomitant]
  6. SINGULAIR [Concomitant]
  7. METOPROLOL [Concomitant]
  8. ZESTRIL [Concomitant]
  9. SYNTHROID [Concomitant]
  10. ALBUTEROL [Concomitant]
  11. POTASSIUM [Concomitant]
  12. MULTIVITAMIN [Concomitant]
  13. NEURONTIN (GAPENTIN) [Concomitant]
  14. LASIX [Concomitant]
  15. LASIX [Concomitant]

REACTIONS (7)
  - ARTHRALGIA [None]
  - ASTHENIA [None]
  - BLOOD TEST ABNORMAL [None]
  - HAEMATEMESIS [None]
  - PHARMACEUTICAL PRODUCT COMPLAINT [None]
  - PNEUMONIA [None]
  - ULCER [None]
